FAERS Safety Report 14311063 (Version 1)
Quarter: 2017Q4

REPORT INFORMATION
  Report Type: Spontaneous
  Country: US (occurrence: US)
  Receive Date: 20171221
  Receipt Date: 20171221
  Transmission Date: 20180321
  Serious: Yes (Hospitalization)
  Sender: FDA-Public Use
  Company Number: US-SA-2017SA106152

PATIENT
  Age: 79 Year
  Sex: Female
  Weight: 88 kg

DRUGS (15)
  1. GLIMEPIRIDE. [Concomitant]
     Active Substance: GLIMEPIRIDE
     Indication: DIABETES MELLITUS
     Route: 065
     Dates: start: 20140624
  2. ISOSORBIDE. [Concomitant]
     Active Substance: ISOSORBIDE
     Indication: ANGINA PECTORIS
     Route: 065
     Dates: start: 20140919
  3. ASPIRIN. [Suspect]
     Active Substance: ASPIRIN
     Indication: CORONARY ARTERY DISEASE
     Route: 048
     Dates: start: 20150318, end: 20160517
  4. LISINOPRIL. [Concomitant]
     Active Substance: LISINOPRIL
     Indication: HYPERTENSION
     Route: 065
     Dates: start: 20090123
  5. ATENOLOL. [Concomitant]
     Active Substance: ATENOLOL
     Indication: HYPERTENSION
     Route: 065
     Dates: start: 20151114
  6. AMLODIPINE [Concomitant]
     Active Substance: AMLODIPINE BESYLATE
     Indication: HYPERTENSION
     Route: 065
     Dates: start: 20131220
  7. CALCIUM [Concomitant]
     Active Substance: CALCIUM
     Route: 065
     Dates: start: 20050222
  8. PLAVIX [Suspect]
     Active Substance: CLOPIDOGREL BISULFATE
     Indication: CORONARY ARTERY DISEASE
     Route: 048
     Dates: start: 20160522
  9. PLAVIX [Suspect]
     Active Substance: CLOPIDOGREL BISULFATE
     Indication: CORONARY ARTERY DISEASE
     Route: 048
     Dates: start: 20090123, end: 20160517
  10. ATORVASTATIN CALCIUM. [Concomitant]
     Active Substance: ATORVASTATIN CALCIUM
     Indication: HYPERLIPIDAEMIA
     Route: 065
     Dates: start: 20090520
  11. NITROSTAT [Concomitant]
     Active Substance: NITROGLYCERIN
     Indication: ANGINA PECTORIS
     Route: 065
     Dates: start: 20110204
  12. FENOFIBRATE. [Concomitant]
     Active Substance: FENOFIBRATE
     Indication: HYPERLIPIDAEMIA
     Route: 065
     Dates: start: 20100129
  13. PLACEBO [Suspect]
     Active Substance: UNSPECIFIED INGREDIENT
     Indication: CARDIOVASCULAR DISORDER
     Dosage: EVERY 2 WEEKS
     Route: 058
     Dates: start: 20151113, end: 20161028
  14. FISH OIL [Concomitant]
     Active Substance: FISH OIL
     Route: 065
     Dates: start: 20090123
  15. HYDROCHLOROTHIAZIDE. [Concomitant]
     Active Substance: HYDROCHLOROTHIAZIDE
     Indication: HYPERTENSION
     Route: 065
     Dates: start: 20160429

REACTIONS (14)
  - Blood creatinine increased [Unknown]
  - Gastric ulcer [Recovered/Resolved]
  - Occult blood [Unknown]
  - Dyspnoea exertional [Unknown]
  - Fatigue [Unknown]
  - Asthenia [Unknown]
  - Dizziness [Unknown]
  - Haemoglobin decreased [Unknown]
  - Upper gastrointestinal haemorrhage [Unknown]
  - Melaena [Unknown]
  - Haematocrit decreased [Unknown]
  - Blood urea increased [Unknown]
  - Gastritis erosive [Recovered/Resolved]
  - Anaemia [Unknown]

NARRATIVE: CASE EVENT DATE: 20160506
